FAERS Safety Report 6023799-X (Version None)
Quarter: 2008Q4

REPORT INFORMATION
  Report Type: 
  Country: None (occurrence: None)
  Receive Date: 20081223
  Receipt Date: 20081210
  Transmission Date: 20090506
  Serious: Yes (Other)
  Sender: FDA-Public Use
  Company Number: GXKR2008GB11851

PATIENT
  Sex: Female

DRUGS (1)
  1. PAROXETINE HCL [Suspect]
     Indication: COSTOCHONDRITIS
     Dosage: 20 MG/DAY, ORAL; 30 MG/DAY, ORAL
     Route: 048

REACTIONS (3)
  - BREAST ENLARGEMENT [None]
  - BREAST NEOPLASM [None]
  - OESTROGEN RECEPTOR ASSAY POSITIVE [None]
